FAERS Safety Report 14540929 (Version 1)
Quarter: 2018Q1

REPORT INFORMATION
  Report Type: Spontaneous
  Country: FI (occurrence: FI)
  Receive Date: 20180216
  Receipt Date: 20180216
  Transmission Date: 20180509
  Serious: Yes (Disabling)
  Sender: FDA-Public Use
  Company Number: FI-OTSUKA-KJ20051673

PATIENT

DRUGS (6)
  1. ABILIFY [Suspect]
     Active Substance: ARIPIPRAZOLE
     Indication: DRUG DEPENDENCE
     Route: 048
     Dates: start: 20031125, end: 20050709
  2. ABILIFY [Suspect]
     Active Substance: ARIPIPRAZOLE
     Indication: DRUG ABUSE
  3. OXAZEPAM. [Concomitant]
     Active Substance: OXAZEPAM
     Route: 065
  4. METHADONE [Concomitant]
     Active Substance: METHADONE HYDROCHLORIDE
     Route: 065
     Dates: start: 1999
  5. SURMONTIL [Suspect]
     Active Substance: TRIMIPRAMINE MALEATE
     Indication: INSOMNIA
     Dosage: 100 MG, UNK
     Route: 065
     Dates: start: 20050627, end: 20050704
  6. SURMONTIL [Suspect]
     Active Substance: TRIMIPRAMINE MALEATE
     Indication: INSOMNIA
     Dosage: 50 MG, UNK
     Route: 065
     Dates: start: 20050608, end: 20050626

REACTIONS (2)
  - Blindness [Not Recovered/Not Resolved]
  - Arterial thrombosis [Not Recovered/Not Resolved]

NARRATIVE: CASE EVENT DATE: 20050704
